FAERS Safety Report 6337390-9 (Version None)
Quarter: 2009Q3

REPORT INFORMATION
  Report Type: 
  Country: None (occurrence: None)
  Receive Date: 20090901
  Receipt Date: 20090901
  Transmission Date: 20100115
  Serious: Yes (Life-Threatening, Hospitalization)
  Sender: FDA-Public Use
  Company Number: None

PATIENT
  Age: 31 Year
  Sex: Male
  Weight: 77.6 kg

DRUGS (1)
  1. CARBAMAZEPINE [Suspect]
     Dosage: 400 MG BID PO
     Route: 048
     Dates: start: 20090608, end: 20090701

REACTIONS (2)
  - ERYTHEMA MULTIFORME [None]
  - STEVENS-JOHNSON SYNDROME [None]
